FAERS Safety Report 23962127 (Version 2)
Quarter: 2024Q2

REPORT INFORMATION
  Report Type: Spontaneous
  Country: US (occurrence: US)
  Receive Date: 20240611
  Receipt Date: 20240614
  Transmission Date: 20240715
  Serious: Yes (Other)
  Sender: FDA-Public Use
  Company Number: US-TEVA-VS-3207841

PATIENT
  Age: 32 Year
  Sex: Female

DRUGS (1)
  1. TRI-LO-SPRINTEC [Suspect]
     Active Substance: ETHINYL ESTRADIOL\NORGESTIMATE
     Indication: Contraception
     Dosage: STRENGTH: 0.180 MG / 0.025 MG; 0.215 MG / 0.025 MG; 0.250 MG / 0.025 MG
     Route: 065
     Dates: start: 2023

REACTIONS (3)
  - Abortion induced [Unknown]
  - Recalled product administered [Unknown]
  - Pregnancy on contraceptive [Unknown]

NARRATIVE: CASE EVENT DATE: 20240101
